FAERS Safety Report 11680429 (Version 2)
Quarter: 2015Q4

REPORT INFORMATION
  Report Type: Spontaneous
  Country: US (occurrence: US)
  Receive Date: 20151027
  Receipt Date: 20151104
  Transmission Date: 20160304
  Serious: No
  Sender: FDA-Public Use
  Company Number: US-ELI_LILLY_AND_COMPANY-US201009002564

PATIENT
  Sex: Female

DRUGS (5)
  1. FORTEO [Suspect]
     Active Substance: TERIPARATIDE
     Indication: OSTEOPOROSIS
     Dosage: 20 UG, DAILY (1/D)
     Dates: start: 20100813
  2. ANALGESICS [Concomitant]
     Active Substance: UNSPECIFIED INGREDIENT
     Indication: PAIN
     Dosage: UNK UNK, QD
     Dates: end: 201008
  3. FORTEO [Suspect]
     Active Substance: TERIPARATIDE
     Dosage: 20 UG, QD
     Route: 065
  4. FORTEO [Suspect]
     Active Substance: TERIPARATIDE
     Dosage: 20 UG, DAILY (1/D)
  5. FORTEO [Suspect]
     Active Substance: TERIPARATIDE
     Dosage: 20 UG, QD

REACTIONS (13)
  - Posture abnormal [Unknown]
  - Poor quality sleep [Unknown]
  - Pain in extremity [Unknown]
  - Injection site mass [Unknown]
  - Back pain [Unknown]
  - Injection site bruising [Unknown]
  - Arthralgia [Unknown]
  - Muscle spasms [Unknown]
  - Sleep disorder due to a general medical condition [Unknown]
  - Joint stiffness [Not Recovered/Not Resolved]
  - Middle insomnia [Unknown]
  - Musculoskeletal stiffness [Not Recovered/Not Resolved]
  - Blood calcium increased [Unknown]
